FAERS Safety Report 4593355-9 (Version None)
Quarter: 2005Q1

REPORT INFORMATION
  Report Type: 
  Country: None (occurrence: None)
  Receive Date: 20050224
  Receipt Date: 20040505
  Transmission Date: 20050727
  Serious: No
  Sender: FDA-Public Use
  Company Number: US-BRISTOL-MYERS SQUIBB COMPANY-12580270

PATIENT
  Age: 67 Year
  Sex: Female
  Weight: 73 kg

DRUGS (5)
  1. EXCEDRIN (MIGRAINE) [Suspect]
     Indication: MIGRAINE
     Route: 048
  2. DETROL [Concomitant]
  3. NEXIUM [Concomitant]
  4. PREMARIN [Concomitant]
  5. CLONAZEPAM [Concomitant]

REACTIONS (1)
  - MEDICATION ERROR [None]
